FAERS Safety Report 9843184 (Version 1)
Quarter: 2014Q1

REPORT INFORMATION
  Report Type: Spontaneous
  Country: US (occurrence: US)
  Receive Date: 20140124
  Receipt Date: 20140124
  Transmission Date: 20141002
  Serious: Yes (Hospitalization, Other)
  Sender: FDA-Public Use
  Company Number: US-RB-062779-14

PATIENT
  Sex: Male

DRUGS (2)
  1. SUBOXONE TABLET [Suspect]
     Indication: DRUG DEPENDENCE
     Dosage: DOSING DETAILS UNKNOWN, CUTTING AND TAKING A PIECE PER DAY
     Route: 060
     Dates: end: 2013
  2. SUBOXONE FILM [Suspect]
     Indication: DRUG DEPENDENCE
     Dosage: SUBOXONE FILM; DOSING DETAILS UNKNOWN, CUTTING AND TAKING ONE PIECE PER DAY
     Route: 060

REACTIONS (10)
  - Substance abuse [Not Recovered/Not Resolved]
  - Wrong technique in drug usage process [Not Recovered/Not Resolved]
  - Road traffic accident [Recovered/Resolved]
  - Intra-abdominal haematoma [Recovered/Resolved]
  - Spleen disorder [Recovered/Resolved]
  - Spinal fracture [Recovered/Resolved]
  - Pelvic fracture [Recovered/Resolved]
  - Facial bones fracture [Recovered/Resolved]
  - Facial bones fracture [Recovered/Resolved]
  - Tooth fracture [Recovered/Resolved]
